FAERS Safety Report 7908701-5 (Version None)
Quarter: 2011Q4

REPORT INFORMATION
  Report Type: 
  Country: None (occurrence: None)
  Receive Date: 20111111
  Receipt Date: 20110706
  Transmission Date: 20120403
  Serious: Yes (Other)
  Sender: FDA-Public Use
  Company Number: US-BAYER-2011-003536

PATIENT
  Age: 37 Year
  Sex: Female
  Weight: 70.295 kg

DRUGS (6)
  1. CALCIUM CARBONATE [Concomitant]
     Indication: ABDOMINAL DISCOMFORT
     Dosage: UNK UNK, PRN
     Route: 048
  2. VITAMIN B-12 [Concomitant]
     Dosage: 1 ML, OW
     Route: 058
  3. LEXAPRO [Concomitant]
     Indication: ANXIETY
     Dosage: 10 MG, QD
     Route: 048
     Dates: start: 20000101, end: 20100101
  4. NAPROXEN (ALEVE) [Concomitant]
     Indication: PAIN
     Dosage: UNK UNK, BID
     Route: 048
  5. YAZ [Suspect]
     Indication: CONTRACEPTION
     Dosage: UNK
     Dates: start: 20071201, end: 20080401
  6. ZANTAC [Concomitant]
     Indication: ABDOMINAL DISCOMFORT
     Route: 048

REACTIONS (6)
  - GALLBLADDER DISORDER [None]
  - ABDOMINAL PAIN [None]
  - VOMITING [None]
  - BILIARY DYSKINESIA [None]
  - PAIN [None]
  - INJURY [None]
